FAERS Safety Report 10444249 (Version 1)
Quarter: 2014Q3

REPORT INFORMATION
  Report Type: Spontaneous
  Country: US (occurrence: None)
  Receive Date: 20140909
  Receipt Date: 20140909
  Transmission Date: 20150326
  Serious: Yes (Hospitalization)
  Sender: FDA-Public Use
  Company Number: None

PATIENT
  Age: 45 Year
  Sex: Male
  Weight: 74.2 kg

DRUGS (2)
  1. MIDAZOLAM [Suspect]
     Active Substance: MIDAZOLAM\MIDAZOLAM HYDROCHLORIDE
     Indication: COLONOSCOPY
     Dosage: 5 MG ONCE IV
     Route: 042
     Dates: start: 20140715, end: 20140715
  2. MEPERIDINE [Suspect]
     Active Substance: MEPERIDINE
     Indication: COLONOSCOPY
     Dosage: 50 MG ONCE IV
     Route: 042
     Dates: start: 20140715, end: 20140715

REACTIONS (3)
  - Nausea [None]
  - Abdominal pain [None]
  - Vomiting [None]

NARRATIVE: CASE EVENT DATE: 20140715
